FAERS Safety Report 9225558 (Version 2)
Quarter: 2013Q2

REPORT INFORMATION
  Report Type: Spontaneous
  Country: GB (occurrence: GB)
  Receive Date: 20130411
  Receipt Date: 20130422
  Transmission Date: 20140414
  Serious: Yes (Hospitalization)
  Sender: FDA-Public Use
  Company Number: GB-ROCHE-1209731

PATIENT
  Sex: 0

DRUGS (2)
  1. ACTILYSE [Suspect]
     Indication: VENOOCCLUSIVE DISEASE
     Route: 065
  2. HEPARIN [Concomitant]
     Indication: VENOOCCLUSIVE DISEASE
     Dosage: 5 UNITS/KG/HOUR
     Route: 065

REACTIONS (1)
  - Hepatic failure [Unknown]
